FAERS Safety Report 24884137 (Version 1)
Quarter: 2025Q1

REPORT INFORMATION
  Report Type: Spontaneous
  Country: FR (occurrence: FR)
  Receive Date: 20250124
  Receipt Date: 20250124
  Transmission Date: 20250408
  Serious: Yes (Death)
  Sender: BOEHRINGER INGELHEIM
  Company Number: FR-BoehringerIngelheim-2025-BI-004312

PATIENT
  Age: 77 Year
  Sex: Male

DRUGS (1)
  1. OFEV [Suspect]
     Active Substance: NINTEDANIB
     Indication: Idiopathic pulmonary fibrosis

REACTIONS (2)
  - Respiratory failure [Fatal]
  - Hypertension [Fatal]
